FAERS Safety Report 8838837 (Version 2)
Quarter: 2014Q2

REPORT INFORMATION
  Report Type: Spontaneous
  Country: BR (occurrence: BR)
  Receive Date: 20121015
  Receipt Date: 20140418
  Transmission Date: 20141212
  Serious: Yes (Hospitalization, Other)
  Sender: FDA-Public Use
  Company Number: BR-AMGEN-BRASP2012065060

PATIENT
  Age: 71 Year
  Sex: Female
  Weight: 65 kg

DRUGS (13)
  1. ENBREL [Suspect]
     Indication: RHEUMATOID ARTHRITIS
     Dosage: 50 MG, ONCE WEEKLY
     Route: 058
     Dates: start: 201205
  2. ENBREL [Suspect]
     Dosage: UNK
     Route: 065
  3. ARAVA [Concomitant]
     Dosage: 20 MG, 1X/DAY
  4. METHOTREXATE [Concomitant]
     Dosage: UNK
  5. ENALAPRIL [Concomitant]
     Dosage: 10 MG, EVERY 12 HOURS
  6. LOSARTAN [Concomitant]
     Dosage: 50 MG, EVERY 12 HOURS
  7. PURAN T4 [Concomitant]
     Dosage: 75 MG, ONCE A DAY
  8. AMLODIPINE [Concomitant]
     Dosage: UNK
  9. METHYLDOPA [Concomitant]
     Dosage: 5 MG, EVERY 6 HOURS
  10. CODEINE [Concomitant]
     Dosage: UNK
  11. CORTISONE [Concomitant]
     Dosage: 5 MG, EVERY 6 HOURS
  12. FLUOXETINE [Concomitant]
     Dosage: 20 MG, ONCE A DAY
  13. AAS [Concomitant]
     Dosage: 100 MG, ONCE A DAY

REACTIONS (6)
  - Spinal disorder [Unknown]
  - Pyrexia [Unknown]
  - Bone pain [Unknown]
  - Thyroid neoplasm [Unknown]
  - Pain in extremity [Unknown]
  - Arthralgia [Unknown]
